FAERS Safety Report 14716139 (Version 1)
Quarter: 2018Q2

REPORT INFORMATION
  Report Type: Spontaneous
  Country: NL (occurrence: NL)
  Receive Date: 20180404
  Receipt Date: 20180404
  Transmission Date: 20180711
  Serious: Yes (Other)
  Sender: FDA-Public Use
  Company Number: NL-BAYER-2018-061752

PATIENT
  Sex: Female

DRUGS (3)
  1. MIRENA [Suspect]
     Active Substance: LEVONORGESTREL
  2. FEMODEEN DRAGEE [Suspect]
     Active Substance: ETHINYL ESTRADIOL\GESTODENE
     Dosage: UNK
     Route: 048
     Dates: start: 2013
  3. MIRENA [Suspect]
     Active Substance: LEVONORGESTREL
     Dosage: 20 MCG/24HR, CONT
     Route: 015
     Dates: start: 2013

REACTIONS (8)
  - Genital haemorrhage [None]
  - Device dislocation [None]
  - Dysuria [None]
  - Procedural pain [None]
  - Menstrual discomfort [None]
  - Abdominal pain [None]
  - Suicidal ideation [None]
  - Genital haemorrhage [None]

NARRATIVE: CASE EVENT DATE: 2013
